FAERS Safety Report 6831584-1 (Version None)
Quarter: 2010Q3

REPORT INFORMATION
  Report Type: 
  Country: None (occurrence: None)
  Receive Date: 20100712
  Receipt Date: 20100629
  Transmission Date: 20110219
  Serious: Yes (Hospitalization, Other)
  Sender: FDA-Public Use
  Company Number: PHHY2010SE42630

PATIENT
  Sex: Female

DRUGS (9)
  1. VOLTAREN [Suspect]
     Indication: INFLAMMATION
     Dosage: 50 MG
     Route: 048
     Dates: start: 20100616, end: 20100625
  2. CORTISONE [Concomitant]
     Route: 030
  3. DETRUSITOL [Concomitant]
  4. AMLODIPINE [Concomitant]
  5. VAGIFEM [Concomitant]
     Dosage: 25 MG TWICE A WEEK
  6. IDEOS [Concomitant]
  7. ALENDRONAT [Concomitant]
  8. OXYCONTIN [Concomitant]
  9. OXYCODONE HCL [Concomitant]

REACTIONS (5)
  - CEREBROVASCULAR ACCIDENT [None]
  - ELECTROCARDIOGRAM ABNORMAL [None]
  - HYPERTENSION [None]
  - VERTIGO [None]
  - VISUAL IMPAIRMENT [None]
